FAERS Safety Report 13563236 (Version 1)
Quarter: 2017Q2

REPORT INFORMATION
  Report Type: Spontaneous
  Country: IT (occurrence: IT)
  Receive Date: 20170519
  Receipt Date: 20170519
  Transmission Date: 20170830
  Serious: Yes (Hospitalization)
  Sender: FDA-Public Use
  Company Number: IT-BAYER-2017-090901

PATIENT
  Age: 81 Year
  Sex: Male
  Weight: 67 kg

DRUGS (4)
  1. CARDIOASPIRIN 100 MG [Suspect]
     Active Substance: ASPIRIN
     Indication: PROPHYLAXIS
     Dosage: 100 MG, QD
     Route: 048
     Dates: start: 20150101
  2. HUMALOG [Concomitant]
     Active Substance: INSULIN LISPRO
     Dosage: 24 IU, QD
     Route: 058
  3. COUMADIN [Suspect]
     Active Substance: WARFARIN SODIUM
     Indication: PROPHYLAXIS
     Dosage: 1 DF, PRN
     Route: 048
     Dates: start: 20160101, end: 20170123
  4. TORVAST [Concomitant]
     Active Substance: ATORVASTATIN
     Dosage: 40 MG, QD
     Route: 048

REACTIONS (2)
  - Cerebral haemorrhage [Recovering/Resolving]
  - Hemiparesis [Recovering/Resolving]

NARRATIVE: CASE EVENT DATE: 20170121
